FAERS Safety Report 6693957-X (Version None)
Quarter: 2010Q2

REPORT INFORMATION
  Report Type: 
  Country: None (occurrence: None)
  Receive Date: 20100423
  Receipt Date: 20100420
  Transmission Date: 20101027
  Serious: Yes (Other)
  Sender: FDA-Public Use
  Company Number: CHPA2010US07089

PATIENT
  Sex: Female

DRUGS (1)
  1. PREVACID 24 HR [Suspect]
     Dosage: UNK

REACTIONS (5)
  - DIZZINESS [None]
  - HEADACHE [None]
  - HEMIPLEGIA [None]
  - LETHARGY [None]
  - VISION BLURRED [None]
